FAERS Safety Report 17872876 (Version 3)
Quarter: 2020Q2

REPORT INFORMATION
  Report Type: Report from Study
  Country: KR (occurrence: KR)
  Receive Date: 20200608
  Receipt Date: 20200619
  Transmission Date: 20200714
  Serious: Yes (Death, Life-Threatening, Hospitalization)
  Sender: FDA-Public Use
  Company Number: KR-INCYTE CORPORATION-2019IN009765

PATIENT

DRUGS (32)
  1. JAKAVI [Suspect]
     Active Substance: RUXOLITINIB
     Indication: PRIMARY MYELOFIBROSIS
     Dosage: 20 MG, BID
     Route: 048
     Dates: start: 20190911, end: 20191003
  2. JAKAVI [Suspect]
     Active Substance: RUXOLITINIB
     Dosage: 15 MG, BID
     Route: 048
     Dates: start: 20191011, end: 20200520
  3. BONALING-A [Concomitant]
     Active Substance: DIMENHYDRINATE
     Indication: PRODUCT USED FOR UNKNOWN INDICATION
     Dosage: 1 DF, QD
     Route: 048
     Dates: start: 20190921, end: 20190921
  4. PRECEDEX [Concomitant]
     Active Substance: DEXMEDETOMIDINE HYDROCHLORIDE
     Indication: SEDATION
     Dosage: 50 ML, QD
     Route: 042
     Dates: start: 20190919, end: 20190920
  5. FENTANYL CITRATE. [Concomitant]
     Active Substance: FENTANYL CITRATE
     Indication: PRODUCT USED FOR UNKNOWN INDICATION
     Dosage: 1 DF, QD (AMPOULE)
     Route: 042
     Dates: start: 20190918, end: 20190918
  6. HEXAMEDINE [Concomitant]
     Indication: PROPHYLAXIS
     Dosage: 100 ML, QD
     Route: 049
     Dates: start: 20190916, end: 20190924
  7. CLEXANE [Concomitant]
     Active Substance: ENOXAPARIN SODIUM
     Indication: ANGINA PECTORIS
     Dosage: 1 DF, QD (AMPOULE)
     Route: 042
     Dates: start: 20190917, end: 20190919
  8. ELIQUIS [Concomitant]
     Active Substance: APIXABAN
     Indication: ANGINA PECTORIS
     Dosage: 2 DF, QD
     Route: 048
     Dates: start: 20190921, end: 20191003
  9. PENIRAMIN [Concomitant]
     Indication: PROPHYLAXIS
     Dosage: 1 DF, QD (AMPOULE)
     Route: 042
     Dates: start: 20190916, end: 20190926
  10. NEXIUM MUPS [ESOMEPRAZOLE SODIUM] [Concomitant]
     Active Substance: ESOMEPRAZOLE SODIUM
     Indication: PROPHYLAXIS
     Dosage: 1 DF, QD
     Route: 042
     Dates: start: 20190916, end: 20190923
  11. EXVAN PLUS [Concomitant]
     Indication: HYPERTENSION
     Dosage: 1 DF, QD
     Route: 048
     Dates: start: 20161213, end: 20190916
  12. ZOLMIN [Concomitant]
     Active Substance: TRIAZOLAM
     Indication: INSOMNIA
     Dosage: 1 DF, QD
     Route: 048
     Dates: start: 20091204, end: 20190916
  13. REMIFENTANILO KABI [Concomitant]
     Indication: PRODUCT USED FOR UNKNOWN INDICATION
     Dosage: 2 DF, QD (AMPOULE)
     Route: 042
     Dates: start: 20190916, end: 20190919
  14. LANSTON [Concomitant]
     Active Substance: LANSOPRAZOLE
     Indication: PROPHYLAXIS
     Dosage: 1 DF, QD
     Route: 048
     Dates: start: 20190911, end: 20190916
  15. LEVOTENSION [Concomitant]
     Indication: HYPERTENSION
     Dosage: 1 DF, QD
     Route: 048
     Dates: start: 20190913, end: 20190913
  16. SYNTHROID [Concomitant]
     Active Substance: LEVOTHYROXINE SODIUM
     Indication: HYPOTHYROIDISM
     Dosage: 1 DF, QD
     Route: 048
     Dates: start: 20180621
  17. NORVASC [Concomitant]
     Active Substance: AMLODIPINE BESYLATE
     Indication: HYPERTENSION
     Dosage: 1 DF, QD
     Route: 048
     Dates: start: 20190918, end: 20191003
  18. PERI OLIMEL N4E [Concomitant]
     Indication: PROPHYLAXIS
     Dosage: 1500 ML, QD
     Route: 042
     Dates: start: 20190922, end: 20190924
  19. TAMIPOOL [Concomitant]
     Active Substance: VITAMINS
     Indication: PROPHYLAXIS
     Dosage: 1 DF, QD
     Route: 042
     Dates: start: 20190922, end: 20190924
  20. NEPHSOL [Concomitant]
     Indication: PROPHYLAXIS
     Dosage: 250 ML, QD
     Route: 042
     Dates: start: 20190920, end: 20190920
  21. CORDARONE [Concomitant]
     Active Substance: AMIODARONE HYDROCHLORIDE
     Indication: ANGINA PECTORIS
     Dosage: 1 DF, QD (AMPOULE)
     Route: 042
     Dates: start: 20190918, end: 20190918
  22. NEBILET [Concomitant]
     Active Substance: NEBIVOLOL
     Indication: HYPERTENSION
     Dosage: 1 DF, QD
     Route: 048
     Dates: start: 20150714, end: 20190916
  23. TRAST [Concomitant]
     Indication: PRODUCT USED FOR UNKNOWN INDICATION
     Dosage: 48 MG, QD
     Route: 061
     Dates: start: 20190913, end: 20190913
  24. ZIPAN [PROMETHAZINE HYDROCHLORIDE] [Concomitant]
     Indication: PRODUCT USED FOR UNKNOWN INDICATION
     Dosage: 1 DF, QD (AMPOULE)
     Route: 042
     Dates: start: 20190913, end: 20190913
  25. DULCOLAX-S [Concomitant]
     Indication: PROPHYLAXIS
     Dosage: 2 DF, QD
     Route: 048
     Dates: start: 20190926, end: 20190926
  26. GANATON [Concomitant]
     Active Substance: ITOPRIDE
     Indication: PROPHYLAXIS
     Dosage: 2 DF, QD
     Route: 048
     Dates: start: 20190828
  27. SIGMART [Concomitant]
     Active Substance: NICORANDIL
     Indication: ANGINA PECTORIS
     Dosage: 2 DF, QD
     Route: 048
     Dates: start: 20190828
  28. CILOSTAN CR [Concomitant]
     Indication: ANGINA PECTORIS
     Dosage: 1 DF, QD
     Route: 048
     Dates: start: 20190221, end: 20190916
  29. SMOFKABIVEN PERIPHERAL [Concomitant]
     Indication: PROPHYLAXIS
     Dosage: 1448 ML, QD
     Route: 042
     Dates: start: 20190916, end: 20190916
  30. PHAZYME [DIASTASE;PANCREATIN;PEPSIN;SIMETICONE] [Concomitant]
     Indication: PROPHYLAXIS
     Dosage: 3 DF, QD
     Route: 048
     Dates: start: 20190913, end: 20190913
  31. CONCOR [Concomitant]
     Active Substance: BISOPROLOL FUMARATE
     Indication: HYPERTENSION
     Dosage: 1 DF, QD
     Route: 048
     Dates: start: 20190828
  32. DIOVAN [Concomitant]
     Active Substance: VALSARTAN
     Indication: HYPERTENSION
     Dosage: 0.5 DF, QD
     Route: 048
     Dates: start: 20190828

REACTIONS (4)
  - Myocardial infarction [Not Recovered/Not Resolved]
  - Pneumonia [Recovered/Resolved]
  - Pneumonia [Fatal]
  - Chest pain [Not Recovered/Not Resolved]

NARRATIVE: CASE EVENT DATE: 20190916
